FAERS Safety Report 20429415 (Version 1)
Quarter: 2022Q1

REPORT INFORMATION
  Report Type: Spontaneous
  Country: BR (occurrence: BR)
  Receive Date: 20220204
  Receipt Date: 20220204
  Transmission Date: 20220423
  Serious: Yes (Death)
  Sender: FDA-Public Use
  Company Number: BR-MACLEODS PHARMACEUTICALS US LTD-MAC2022034262

PATIENT

DRUGS (3)
  1. ACYCLOVIR [Suspect]
     Active Substance: ACYCLOVIR
     Indication: Herpes simplex
     Dosage: UNK
     Route: 048
  2. ACYCLOVIR [Suspect]
     Active Substance: ACYCLOVIR
     Dosage: 10 MILLIGRAM/KILOGRAM, TID
     Route: 042
  3. Iimiquimod [Concomitant]
     Indication: HIV infection
     Dosage: UNK UNK, T.I.W. (3 TIMES/WEEK)
     Route: 065

REACTIONS (2)
  - AIDS related complication [Fatal]
  - Drug resistance [Unknown]
